FAERS Safety Report 16541871 (Version 1)
Quarter: 2019Q3

REPORT INFORMATION
  Report Type: Spontaneous
  Country: FR (occurrence: FR)
  Receive Date: 20190708
  Receipt Date: 20190708
  Transmission Date: 20191004
  Serious: Yes (Life-Threatening, Other)
  Sender: FDA-Public Use
  Company Number: FR-MYLANLABS-2019M1063290

PATIENT
  Age: 35 Year
  Sex: Female
  Weight: 60 kg

DRUGS (3)
  1. BUPIVACAINE MYLAN [Suspect]
     Active Substance: BUPIVACAINE
     Indication: SPINAL ANAESTHESIA
     Dosage: 11 MILLIGRAM, ONCE
     Dates: start: 20160606
  2. SUFENTANIL [Concomitant]
     Active Substance: SUFENTANIL
  3. MORPHINE [Concomitant]
     Active Substance: MORPHINE

REACTIONS (2)
  - Drug ineffective [Unknown]
  - Maternal exposure during delivery [Recovered/Resolved]

NARRATIVE: CASE EVENT DATE: 20160606
